FAERS Safety Report 6733306-1 (Version None)
Quarter: 2010Q2

REPORT INFORMATION
  Report Type: 
  Country: None (occurrence: None)
  Receive Date: 20100520
  Receipt Date: 20100511
  Transmission Date: 20101027
  Serious: Yes (Life-Threatening, Hospitalization, Other)
  Sender: FDA-Public Use
  Company Number: CA-PFIZER INC-2009181764

PATIENT
  Age: 41 Year
  Sex: Male

DRUGS (1)
  1. CELEBREX [Suspect]
     Indication: BACK INJURY
     Dosage: 200 MG, 2X/DAY
     Route: 048
     Dates: start: 19990101

REACTIONS (6)
  - CARDIAC FAILURE [None]
  - ECONOMIC PROBLEM [None]
  - EMOTIONAL DISORDER [None]
  - IMPAIRED WORK ABILITY [None]
  - INJURY [None]
  - MYOCARDIAL INFARCTION [None]
